FAERS Safety Report 12672245 (Version 1)
Quarter: 2016Q3

REPORT INFORMATION
  Report Type: Spontaneous
  Country: US (occurrence: US)
  Receive Date: 20160822
  Receipt Date: 20160822
  Transmission Date: 20161109
  Serious: No
  Sender: FDA-Public Use
  Company Number: US-MISSION PHARMACAL COMPANY-1056574

PATIENT
  Age: 51 Year
  Sex: Female

DRUGS (1)
  1. THIOLA [Suspect]
     Active Substance: TIOPRONIN
     Indication: HYDRONEPHROSIS
     Route: 065
     Dates: start: 20141010

REACTIONS (2)
  - Pain [Unknown]
  - Unevaluable event [Unknown]
